FAERS Safety Report 5130476-6 (Version None)
Quarter: 2006Q4

REPORT INFORMATION
  Report Type: 
  Country: None (occurrence: None)
  Receive Date: 20061013
  Receipt Date: 20060929
  Transmission Date: 20070319
  Serious: Yes (Hospitalization)
  Sender: FDA-Public Use
  Company Number: US200610000201

PATIENT
  Age: 45 Year
  Sex: Female

DRUGS (4)
  1. HUMALOG [Suspect]
     Indication: DIABETES MELLITUS
     Dates: start: 20050401
  2. HUMALOG [Suspect]
     Indication: DIABETES MELLITUS
     Dates: start: 20060915
  3. HUMALOG PEN [Concomitant]
  4. CORTICOSTEROIDS [Concomitant]

REACTIONS (1)
  - PULMONARY FIBROSIS [None]
